FAERS Safety Report 24684244 (Version 1)
Quarter: 2024Q4

REPORT INFORMATION
  Report Type: Report from Study
  Country: US (occurrence: US)
  Receive Date: 20241202
  Receipt Date: 20241202
  Transmission Date: 20250114
  Serious: Yes (Hospitalization, Other)
  Sender: LEO PHARM
  Company Number: US-LEO Pharma-375404

PATIENT
  Age: 61 Year
  Sex: Male

DRUGS (1)
  1. ADBRY [Suspect]
     Active Substance: TRALOKINUMAB-LDRM
     Indication: Dermatitis atopic
     Route: 058
     Dates: start: 20241017

REACTIONS (2)
  - Pneumonia [Unknown]
  - Rhinovirus infection [Unknown]

NARRATIVE: CASE EVENT DATE: 20241101
